FAERS Safety Report 25451437 (Version 2)
Quarter: 2025Q2

REPORT INFORMATION
  Report Type: Spontaneous
  Country: CN (occurrence: CN)
  Receive Date: 20250618
  Receipt Date: 20250625
  Transmission Date: 20250716
  Serious: Yes (Other)
  Sender: INNOVIVA
  Company Number: CN-INNOVIVA SPECIALTY THERAPEUTICS-2025-ISTX-000085

PATIENT

DRUGS (14)
  1. XACDURO [Suspect]
     Active Substance: DURLOBACTAM SODIUM\SULBACTAM SODIUM
     Indication: Acinetobacter infection
     Route: 041
     Dates: start: 20250509, end: 20250516
  2. TIGECYCLINE [Concomitant]
     Active Substance: TIGECYCLINE
     Indication: Product used for unknown indication
     Route: 065
  3. MEROPENEM [Concomitant]
     Active Substance: MEROPENEM
     Indication: Product used for unknown indication
     Route: 065
  4. ENOXAPARIN SODIUM [Concomitant]
     Active Substance: ENOXAPARIN SODIUM
     Indication: Product used for unknown indication
     Route: 065
  5. ACETYLCYSTEINE [Concomitant]
     Active Substance: ACETYLCYSTEINE
     Indication: Product used for unknown indication
     Route: 065
  6. Enteral nutritional suspension (SP) [Concomitant]
     Indication: Product used for unknown indication
     Route: 065
  7. Bifid triple viable [Concomitant]
     Indication: Product used for unknown indication
     Route: 065
  8. CEFOPERAZONE SODIUM\SULBACTAM SODIUM [Concomitant]
     Active Substance: CEFOPERAZONE SODIUM\SULBACTAM SODIUM
     Indication: Product used for unknown indication
  9. VANCOMYCIN HYDROCHLORIDE [Concomitant]
     Active Substance: VANCOMYCIN HYDROCHLORIDE
     Indication: Product used for unknown indication
     Route: 065
  10. IRBESARTAN [Concomitant]
     Active Substance: IRBESARTAN
     Indication: Product used for unknown indication
     Route: 065
  11. ETIMICIN SULFATE [Concomitant]
     Active Substance: ETIMICIN SULFATE
     Indication: Product used for unknown indication
     Route: 065
  12. HALOMETASONE [Concomitant]
     Active Substance: HALOMETASONE
     Indication: Product used for unknown indication
     Route: 065
  13. TRICLOSAN [Concomitant]
     Active Substance: TRICLOSAN
     Indication: Product used for unknown indication
     Route: 065
  14. Enteral nutritional suspension (SP) [Concomitant]
     Indication: Product used for unknown indication

REACTIONS (5)
  - Cardiac failure acute [Unknown]
  - Acute kidney injury [Unknown]
  - Enteritis [Unknown]
  - Dysbiosis [Unknown]
  - Product prescribing error [Unknown]

NARRATIVE: CASE EVENT DATE: 20250509
